FAERS Safety Report 11817983 (Version 2)
Quarter: 2019Q2

REPORT INFORMATION
  Report Type: Spontaneous
  Country: US (occurrence: US)
  Receive Date: 20151210
  Receipt Date: 20190614
  Transmission Date: 20190711
  Serious: No
  Sender: FDA-Public Use
  Company Number: US-JNJFOC-20151111232

PATIENT
  Sex: Male

DRUGS (5)
  1. RISPERDAL [Suspect]
     Active Substance: RISPERIDONE
     Indication: BIPOLAR DISORDER
     Dosage: VARYING DOSES OF 0.5 MG-1.0 MG
     Route: 048
     Dates: start: 2003, end: 2006
  2. RISPERDAL [Suspect]
     Active Substance: RISPERIDONE
     Indication: DISTURBANCE IN SOCIAL BEHAVIOUR
     Dosage: VARYING DOSES OF 0.5 MG-1.0 MG
     Route: 048
     Dates: start: 2003, end: 2006
  3. RISPERDAL [Suspect]
     Active Substance: RISPERIDONE
     Indication: AUTISM SPECTRUM DISORDER
     Dosage: VARYING DOSES OF 0.5 MG-1.0 MG
     Route: 048
     Dates: start: 2003, end: 2006
  4. RISPERDAL [Suspect]
     Active Substance: RISPERIDONE
     Indication: ATTENTION DEFICIT/HYPERACTIVITY DISORDER
     Dosage: VARYING DOSES OF 0.5 MG-1.0 MG
     Route: 048
     Dates: start: 2003, end: 2006
  5. RISPERDAL [Suspect]
     Active Substance: RISPERIDONE
     Indication: SEPARATION ANXIETY DISORDER
     Dosage: VARYING DOSES OF 0.5 MG-1.0 MG
     Route: 048
     Dates: start: 2003, end: 2006

REACTIONS (3)
  - Extrapyramidal disorder [Unknown]
  - Gynaecomastia [Unknown]
  - Abnormal weight gain [Unknown]

NARRATIVE: CASE EVENT DATE: 2004
